FAERS Safety Report 5853050-2 (Version None)
Quarter: 2008Q3

REPORT INFORMATION
  Report Type: 
  Country: None (occurrence: None)
  Receive Date: 20080821
  Receipt Date: 20080819
  Transmission Date: 20090109
  Serious: Yes (Life-Threatening, Hospitalization)
  Sender: FDA-Public Use
  Company Number: FR-ASTRAZENECA-2008CG01233

PATIENT
  Age: 16689 Day
  Sex: Female

DRUGS (6)
  1. DIPRIVAN [Suspect]
     Indication: GENERAL ANAESTHESIA
     Route: 042
     Dates: start: 20080728, end: 20080728
  2. MIDAZOLAM PANPHARMA [Suspect]
     Indication: GENERAL ANAESTHESIA
     Route: 042
     Dates: start: 20080728, end: 20080728
  3. KETAMINE HCL [Suspect]
     Indication: GENERAL ANAESTHESIA
     Route: 042
     Dates: start: 20080728, end: 20080728
  4. SUFENTANIL MERCK [Suspect]
     Indication: GENERAL ANAESTHESIA
     Route: 042
     Dates: start: 20080728, end: 20080728
  5. TRACRIUM [Suspect]
     Indication: GENERAL ANAESTHESIA
     Route: 042
     Dates: start: 20080728, end: 20080728
  6. ATARAX [Concomitant]
     Indication: PREMEDICATION
     Route: 030
     Dates: start: 20080728, end: 20080728

REACTIONS (1)
  - ANAPHYLACTIC SHOCK [None]
